FAERS Safety Report 7722182-6 (Version None)
Quarter: 2011Q3

REPORT INFORMATION
  Report Type: 
  Country: None (occurrence: None)
  Receive Date: 20110831
  Receipt Date: 20110825
  Transmission Date: 20111222
  Serious: Yes (Other)
  Sender: FDA-Public Use
  Company Number: CHPA2011US11493

PATIENT
  Age: 32 Year
  Sex: Female

DRUGS (4)
  1. ADDERALL 5 [Concomitant]
     Route: 048
  2. XANAX [Concomitant]
     Route: 048
  3. NICOTINE [Suspect]
     Indication: SMOKING CESSATION THERAPY
     Dosage: 21 MG, QD
     Route: 062
     Dates: start: 20110824, end: 20110825
  4. NAPROXEN [Concomitant]
     Route: 048

REACTIONS (4)
  - CONVULSION [None]
  - FEELING ABNORMAL [None]
  - ASTHENIA [None]
  - ABNORMAL DREAMS [None]
